FAERS Safety Report 15950432 (Version 2)
Quarter: 2019Q1

REPORT INFORMATION
  Report Type: Spontaneous
  Country: US (occurrence: US)
  Receive Date: 20190212
  Receipt Date: 20190213
  Transmission Date: 20190417
  Serious: Yes (Other)
  Sender: FDA-Public Use
  Company Number: US-SA-2019SA039177

PATIENT
  Age: 45 Year
  Sex: Male

DRUGS (1)
  1. LEMTRADA [Suspect]
     Active Substance: ALEMTUZUMAB
     Dosage: 12 MG, QD
     Route: 041
     Dates: start: 201708, end: 201708

REACTIONS (3)
  - Coccidioidomycosis [Unknown]
  - Immunosuppression [Unknown]
  - CD4 lymphocytes decreased [Not Recovered/Not Resolved]
